FAERS Safety Report 16579639 (Version 1)
Quarter: 2019Q3

REPORT INFORMATION
  Report Type: Spontaneous
  Country: DE (occurrence: DE)
  Receive Date: 20190716
  Receipt Date: 20190716
  Transmission Date: 20191004
  Serious: Yes (Hospitalization)
  Sender: FDA-Public Use
  Company Number: DE-AMGEN-DEUSP2019111744

PATIENT
  Age: 67 Year
  Sex: Male
  Weight: 66 kg

DRUGS (11)
  1. JURNISTA [Concomitant]
     Active Substance: HYDROMORPHONE HYDROCHLORIDE
     Dosage: 32 MILLIGRAM, 1-0-0-0
     Route: 048
  2. LENALIDOMIDE [Suspect]
     Active Substance: LENALIDOMIDE
     Indication: PLASMA CELL MYELOMA
     Dosage: NK MG, ACCORDING TO SCHEDULE, TABLETS
     Route: 048
  3. COLECALCIFEROL [Concomitant]
     Active Substance: CHOLECALCIFEROL
     Dosage: NK ^NOT KNOWN^
     Route: 048
  4. ACETYLSALICYLIC ACID [Concomitant]
     Active Substance: ASPIRIN
     Dosage: 100 MILLIGRAM, 1-0-0-0
     Route: 048
  5. TAMSULOSIN [Concomitant]
     Active Substance: TAMSULOSIN
     Dosage: 0.4 MILLIGRAM, 1-0-0-0
     Route: 048
  6. SELENDISULFID [Concomitant]
     Dosage: 300 MILLIGRAM, 1-0-0-0
     Route: 048
  7. METAMIZOL [Concomitant]
     Active Substance: METAMIZOLE SODIUM
     Dosage: 500 MILLIGRAM, AS NECESSARY
     Route: 048
  8. CARFILZOMIB [Suspect]
     Active Substance: CARFILZOMIB
     Indication: PLASMA CELL MYELOMA
     Dosage: NK MG, ACCORDING TO SCHEDULE, SOLUTION FOR INJECTION/ INFUSION
     Route: 042
  9. VALSARTAN. [Concomitant]
     Active Substance: VALSARTAN
     Dosage: 160 MILLIGRAM 1-0-0-0
     Route: 048
  10. CYMBALTA [Concomitant]
     Active Substance: DULOXETINE HYDROCHLORIDE
     Dosage: 60 MILLIGRAM, 0-0-1-0
     Route: 048
  11. MAGNESIUM [Concomitant]
     Active Substance: MAGNESIUM
     Dosage: NK MG, NK, NK
     Route: 048

REACTIONS (4)
  - General physical health deterioration [Unknown]
  - Pyrexia [Unknown]
  - Dyspnoea [Unknown]
  - Cough [Unknown]
